FAERS Safety Report 22323031 (Version 1)
Quarter: 2023Q2

REPORT INFORMATION
  Report Type: Report from Study
  Country: NL (occurrence: NL)
  Receive Date: 20230516
  Receipt Date: 20230516
  Transmission Date: 20230722
  Serious: Yes (Hospitalization, Disabling)
  Sender: FDA-Public Use
  Company Number: NL-CELLTRION INC.-2023NL008740

PATIENT

DRUGS (5)
  1. INFLIXIMAB [Suspect]
     Active Substance: INFLIXIMAB
     Indication: Uveitis
     Dosage: UNK
  2. INFLIXIMAB [Suspect]
     Active Substance: INFLIXIMAB
     Indication: Blau syndrome
  3. METHOTREXATE [Concomitant]
     Active Substance: METHOTREXATE
     Indication: Uveitis
     Dosage: 200 G
     Route: 048
     Dates: start: 2009, end: 202209
  4. METHOTREXATE [Concomitant]
     Active Substance: METHOTREXATE
     Dosage: 200 UNK
     Route: 058
     Dates: start: 2009, end: 202209
  5. CELLCEPT [Concomitant]
     Active Substance: MYCOPHENOLATE MOFETIL
     Indication: Uveitis
     Dosage: UNK
     Route: 048
     Dates: start: 202209

REACTIONS (2)
  - Drug ineffective [Recovered/Resolved]
  - Visual impairment [Recovered/Resolved]
